FAERS Safety Report 11876245 (Version 3)
Quarter: 2016Q1

REPORT INFORMATION
  Report Type: Report from Study
  Country: DE (occurrence: DE)
  Receive Date: 20151229
  Receipt Date: 20160215
  Transmission Date: 20160526
  Serious: Yes (Hospitalization)
  Sender: FDA-Public Use
  Company Number: DE-ABBVIE-15P-062-1525810-00

PATIENT
  Age: 73 Year
  Sex: Male
  Weight: 95 kg

DRUGS (1)
  1. DUODOPA [Suspect]
     Active Substance: CARBIDOPA\LEVODOPA
     Indication: PARKINSON^S DISEASE
     Route: 050
     Dates: start: 20151214

REACTIONS (5)
  - Cardiac failure [Unknown]
  - Gastric atony [Unknown]
  - Pulmonary oedema [Not Recovered/Not Resolved]
  - Pneumonia aspiration [Unknown]
  - Vomiting [Unknown]

NARRATIVE: CASE EVENT DATE: 20151219
